FAERS Safety Report 8433506-9 (Version None)
Quarter: 2012Q2

REPORT INFORMATION
  Report Type: 
  Country: None (occurrence: None)
  Receive Date: 20120613
  Receipt Date: 20120606
  Transmission Date: 20120825
  Serious: Yes (Other)
  Sender: FDA-Public Use
  Company Number: FR-VERTEX PHARMACEUTICALS INC.-000000000000000867

PATIENT
  Sex: Female
  Weight: 52 kg

DRUGS (7)
  1. PEGASYS [Concomitant]
     Indication: HEPATITIS C
     Dosage: DOSAGE FORM: UNSPECIFIED, 180 UNSPECIFIED UNITS A WEEK
     Route: 065
     Dates: start: 20110809
  2. TRUVADA [Concomitant]
     Indication: HIV INFECTION
     Dosage: DOSAGE FORM: UNSPECIFIED
     Route: 065
     Dates: start: 20101215
  3. REYATAZ [Concomitant]
     Indication: HIV INFECTION
     Dosage: DOSAGE FORM: UNSPECIFIED, 300 UNSPECIFIED UNITS A DAY
     Route: 065
     Dates: start: 20101215
  4. GAVISCON [Concomitant]
     Route: 065
     Dates: start: 20110907
  5. NORVIR [Concomitant]
     Indication: HIV INFECTION
     Dosage: DOSAGE FORM: UNSPECIFIED, 100 UNSPECIFIED UNITS A DAY
     Route: 065
     Dates: start: 20101215
  6. VX-950 [Suspect]
     Indication: HEPATITIS C
     Dosage: DOSAGE FORM: TABLET
     Route: 048
     Dates: start: 20110907, end: 20111130
  7. COPEGUS [Concomitant]
     Indication: HEPATITIS C
     Dosage: DOSAGE FORM: UNSPECIFIED, 1000 UNSPECIFIED UNITS A DAY
     Route: 065
     Dates: start: 20110809

REACTIONS (1)
  - NEUTROPENIA [None]
